FAERS Safety Report 4498773-5 (Version None)
Quarter: 2004Q4

REPORT INFORMATION
  Report Type: 
  Country: None (occurrence: None)
  Receive Date: 20041108
  Receipt Date: 20041029
  Transmission Date: 20050328
  Serious: Yes (Hospitalization)
  Sender: FDA-Public Use
  Company Number: 210101

PATIENT
  Age: 49 Year
  Sex: Female

DRUGS (9)
  1. XOLAIR [Suspect]
     Indication: ASTHMA
     Dosage: 300 MG, 1/MONTH
     Dates: start: 20041021
  2. THEOPHYLLINE CONTROLLED-RELEASE (THEOPHYLLINE) [Concomitant]
  3. HUMIRA [Concomitant]
  4. PREDNISONE [Concomitant]
  5. FLOVENT [Concomitant]
  6. CALCIUM (CALCIUM NOS) [Concomitant]
  7. SPIRIVA [Concomitant]
  8. ALBUTEROL INHALER (ALBUTEROL, ALBUTEROL SULFATE) [Concomitant]
  9. ADVAIR (FLUTICASONE PROPIONATE, SALMETEROL XINAFOATE) [Concomitant]

REACTIONS (8)
  - ANXIETY [None]
  - ASTHMA [None]
  - CHEST DISCOMFORT [None]
  - CONDITION AGGRAVATED [None]
  - FEELING HOT [None]
  - HEADACHE [None]
  - PARAESTHESIA [None]
  - WHEEZING [None]
